FAERS Safety Report 13013400 (Version 1)
Quarter: 2016Q4

REPORT INFORMATION
  Report Type: Spontaneous
  Country: US (occurrence: US)
  Receive Date: 20161209
  Receipt Date: 20161209
  Transmission Date: 20170207
  Serious: No
  Sender: FDA-Public Use
  Company Number: US-GLAXOSMITHKLINE-A1027445A

PATIENT
  Age: 85 Year
  Sex: Male

DRUGS (5)
  1. CORTISONE SOLUTION FOR INJECTION [Suspect]
     Active Substance: CORTISONE\HYDROCORTISONE
     Indication: ARTHRITIS
     Route: 042
     Dates: start: 2011
  2. ISENTRESS [Concomitant]
     Active Substance: RALTEGRAVIR POTASSIUM
  3. EPZICOM [Suspect]
     Active Substance: ABACAVIR SULFATE\LAMIVUDINE
     Indication: HIV INFECTION
     Dosage: 1 DF, QD
     Route: 048
     Dates: start: 2008
  4. CORTISONE SOLUTION FOR INJECTION [Suspect]
     Active Substance: CORTISONE\HYDROCORTISONE
     Indication: ROTATOR CUFF SYNDROME
  5. CORTISONE SOLUTION FOR INJECTION [Suspect]
     Active Substance: CORTISONE\HYDROCORTISONE
     Indication: TENDONITIS

REACTIONS (5)
  - Dysphagia [Not Recovered/Not Resolved]
  - Throat irritation [Recovered/Resolved]
  - Wrong technique in product usage process [None]
  - Hallucination [Recovered/Resolved]
  - Foreign body [Unknown]

NARRATIVE: CASE EVENT DATE: 2011
